FAERS Safety Report 19276092 (Version 1)
Quarter: 2021Q2

REPORT INFORMATION
  Report Type: Other
  Country: MX (occurrence: MX)
  Receive Date: 20210519
  Receipt Date: 20210519
  Transmission Date: 20210717
  Serious: Yes (Hospitalization)
  Sender: FDA-Public Use
  Company Number: MX-B.BRAUN MEDICAL INC.-2110720

PATIENT
  Age: 14 Year
  Sex: Male

DRUGS (4)
  1. METOPROLOL. [Concomitant]
     Active Substance: METOPROLOL
  2. LIDOCAINE HYDROCHLORIDE. [Suspect]
     Active Substance: LIDOCAINE HYDROCHLORIDE
     Indication: VENTRICULAR TACHYCARDIA
  3. ESMOLOL [Concomitant]
     Active Substance: ESMOLOL HYDROCHLORIDE
  4. AMIODARONE HYDROCHLORIDE. [Concomitant]
     Active Substance: AMIODARONE HYDROCHLORIDE

REACTIONS (1)
  - Drug ineffective [None]
